FAERS Safety Report 9556063 (Version 1)
Quarter: 2013Q3

REPORT INFORMATION
  Report Type: Spontaneous
  Country: US (occurrence: None)
  Receive Date: 20130815
  Receipt Date: 20130815
  Transmission Date: 20140515
  Serious: Yes (Other)
  Sender: FDA-Public Use
  Company Number: ADDR-2013-00642

PATIENT
  Sex: Male

DRUGS (3)
  1. BACLOFEN INTRATHECAL [Suspect]
     Indication: PAIN
  2. MORPHINE [Concomitant]
  3. BUPIVACAINE (INTRATHECAL) [Concomitant]

REACTIONS (3)
  - Amnesia [None]
  - Therapeutic response decreased [None]
  - Brain injury [None]
